FAERS Safety Report 19690197 (Version 2)
Quarter: 2021Q3

REPORT INFORMATION
  Report Type: Other
  Country: FR (occurrence: FR)
  Receive Date: 20210812
  Receipt Date: 20210820
  Transmission Date: 20211014
  Serious: Yes (Death)
  Sender: FDA-Public Use
  Company Number: FR-CADILA HEALTHCARE LIMITED-FR-ZYDUS-068634

PATIENT

DRUGS (11)
  1. TAMSULOSIN [Suspect]
     Active Substance: TAMSULOSIN
     Indication: WRONG PATIENT
     Dosage: 0.4 MILLIGRAM(INTERVAL?1 TOTAL)
     Route: 048
     Dates: start: 20210707, end: 20210707
  2. ELIQUIS [Suspect]
     Active Substance: APIXABAN
     Indication: WRONG PATIENT
     Dosage: 5 MILLIGRAM(INTERVAL?1 TOTAL)
     Route: 048
     Dates: start: 20210707, end: 20210707
  3. LASILIX [FUROSEMIDE] [Concomitant]
     Active Substance: FUROSEMIDE
     Indication: PRODUCT USED FOR UNKNOWN INDICATION
     Dosage: UNK
  4. DOLIPRANE [Suspect]
     Active Substance: ACETAMINOPHEN
     Indication: WRONG PATIENT
     Dosage: 1 GRAM (INTERVAL 1 TOTAL)
     Route: 048
     Dates: start: 20210707, end: 20210707
  5. MACROGOL 4000 [Concomitant]
     Active Substance: POLYETHYLENE GLYCOL 4000
     Indication: PRODUCT USED FOR UNKNOWN INDICATION
     Dosage: UNK
  6. RAMIPRIL. [Suspect]
     Active Substance: RAMIPRIL
     Indication: WRONG PATIENT
     Dosage: 2.5 MILLIGRAM(INTERVAL?1 TOTAL)
     Route: 048
     Dates: start: 20210707, end: 20210707
  7. IRBESARTAN. [Concomitant]
     Active Substance: IRBESARTAN
     Indication: PRODUCT USED FOR UNKNOWN INDICATION
     Dosage: UNK
  8. NEBIVOLOL. [Concomitant]
     Active Substance: NEBIVOLOL
     Indication: PRODUCT USED FOR UNKNOWN INDICATION
     Dosage: UNK
  9. LEVOTHYROX [Concomitant]
     Active Substance: LEVOTHYROXINE
     Indication: PRODUCT USED FOR UNKNOWN INDICATION
     Dosage: UNK
  10. METFORMINE [Suspect]
     Active Substance: METFORMIN HYDROCHLORIDE
     Indication: WRONG PATIENT
     Dosage: 1 GRAM(INTRVAL?1 TOTAL)
     Route: 048
     Dates: start: 20210707, end: 20210707
  11. XARELTO [Suspect]
     Active Substance: RIVAROXABAN
     Indication: ARRHYTHMIA
     Dosage: 10 MILLIGRAM(INTERVAL?1 TOTAL)
     Route: 048
     Dates: start: 20210707, end: 20210707

REACTIONS (2)
  - Wrong patient received product [Recovered/Resolved]
  - Death [Fatal]

NARRATIVE: CASE EVENT DATE: 20210707
